FAERS Safety Report 22223995 (Version 3)
Quarter: 2023Q2

REPORT INFORMATION
  Report Type: Spontaneous
  Country: US (occurrence: US)
  Receive Date: 20230418
  Receipt Date: 20230525
  Transmission Date: 20230722
  Serious: Yes (Other)
  Sender: FDA-Public Use
  Company Number: US-PFIZER INC-PV202300069474

PATIENT
  Age: 55 Year
  Sex: Male

DRUGS (1)
  1. INLYTA [Suspect]
     Active Substance: AXITINIB
     Dosage: 5 MG

REACTIONS (14)
  - Blister infected [Unknown]
  - Contusion [Unknown]
  - Constipation [Recovered/Resolved]
  - Back pain [Not Recovered/Not Resolved]
  - Injury [Not Recovered/Not Resolved]
  - Headache [Not Recovered/Not Resolved]
  - Gastrointestinal pain [Unknown]
  - Blood pressure increased [Unknown]
  - Blister [Not Recovered/Not Resolved]
  - Gingival pain [Unknown]
  - Glossodynia [Unknown]
  - Diarrhoea [Unknown]
  - Dysphonia [Unknown]
  - Oral pain [Unknown]
